FAERS Safety Report 12802984 (Version 1)
Quarter: 2016Q4

REPORT INFORMATION
  Report Type: Spontaneous
  Country: US (occurrence: US)
  Receive Date: 20161001
  Receipt Date: 20161001
  Transmission Date: 20170207
  Serious: Yes (Other)
  Sender: FDA-Public Use
  Company Number: None

PATIENT
  Age: 34 Year
  Sex: Male
  Weight: 171 kg

DRUGS (2)
  1. IC CIPROFLOXACIN HCL 750MG TAB [Suspect]
     Active Substance: CIPROFLOXACIN
     Indication: EAR INFECTION
     Route: 048
     Dates: start: 20160928, end: 20160930
  2. IBPROUFEN [Concomitant]

REACTIONS (4)
  - Back pain [None]
  - Musculoskeletal stiffness [None]
  - Drug monitoring procedure not performed [None]
  - Therapy cessation [None]

NARRATIVE: CASE EVENT DATE: 20160930
